FAERS Safety Report 10668353 (Version 1)
Quarter: 2014Q4

REPORT INFORMATION
  Report Type: Spontaneous
  Country: US (occurrence: None)
  Receive Date: 20141217
  Receipt Date: 20141217
  Transmission Date: 20150529
  Serious: Yes (Hospitalization)
  Sender: FDA-Public Use
  Company Number: 2014CT000160

PATIENT
  Age: 84 Year
  Sex: Female

DRUGS (1)
  1. KORLYM [Suspect]
     Active Substance: MIFEPRISTONE
     Indication: CUSHING^S SYNDROME
     Route: 048
     Dates: start: 201408, end: 20140919

REACTIONS (2)
  - Dyspnoea [None]
  - Hypokalaemia [None]

NARRATIVE: CASE EVENT DATE: 20140925
